FAERS Safety Report 9421007 (Version 2)
Quarter: 2013Q4

REPORT INFORMATION
  Report Type: Spontaneous
  Country: US (occurrence: US)
  Receive Date: 20130725
  Receipt Date: 20131011
  Transmission Date: 20140711
  Serious: Yes (Hospitalization)
  Sender: FDA-Public Use
  Company Number: US-B.I. PHARMACEUTICALS,INC./RIDGEFIELD-2013-BI-12876BP

PATIENT
  Age: 78 Year
  Sex: Female
  Weight: 67.59 kg

DRUGS (16)
  1. PRADAXA [Suspect]
     Indication: ANTICOAGULANT THERAPY
     Dates: start: 20111011, end: 20120413
  2. PRADAXA [Suspect]
     Indication: ATRIAL FIBRILLATION
  3. ALPHAGAN OPTHALMIC DROPS [Concomitant]
     Route: 031
  4. CALCIUM CALTRATE [Concomitant]
     Dosage: 1200 MG
     Route: 048
  5. B12 [Concomitant]
     Dosage: 500 MCG
     Route: 048
  6. FOLIC ACID [Concomitant]
     Dosage: 0.8 MG
     Route: 048
  7. FUROSEMIDE [Concomitant]
     Dosage: 20 MG
     Route: 048
  8. LEVOTHYROXINE [Concomitant]
     Dosage: 50 MCG
     Route: 048
  9. METOPROLOL [Concomitant]
     Dosage: 100 MG
  10. METOPROLOL [Concomitant]
     Dosage: 50 MG
  11. MULTIVITAMIN [Concomitant]
  12. OMEPRAZOLE [Concomitant]
     Dosage: 20 MG
  13. POTASSIUM CHLORIDE [Concomitant]
     Dosage: 20 MEQ
     Route: 048
  14. SIMVASTATIN [Concomitant]
     Dosage: 50 MG
  15. CARAFATE [Concomitant]
     Dosage: 4 G
     Route: 048
  16. TRAVATAN Z OPHTHALMIC DROPS [Concomitant]
     Route: 031

REACTIONS (2)
  - Gastrointestinal haemorrhage [Unknown]
  - Anaemia [Unknown]
